FAERS Safety Report 12256904 (Version 1)
Quarter: 2016Q2

REPORT INFORMATION
  Report Type: Spontaneous
  Country: US (occurrence: None)
  Receive Date: 20160411
  Receipt Date: 20160411
  Transmission Date: 20160815
  Serious: No
  Sender: FDA-Public Use
  Company Number: None

PATIENT
  Age: 31 Year
  Sex: Male
  Weight: 90.72 kg

DRUGS (2)
  1. ENHANCEMENTS MICRO-DERMABRASION RODAN + FIELDS [Suspect]
     Active Substance: COSMETICS
     Dosage: 0.25 TEASPOON(S) 3 TIMES WEEKLY APPLIED TO A SURFACE, USUALLY THE SKIN
     Route: 061
  2. RODAN FIELDS UNBLEMISH ACNE TREATMENT W SULFUR WASH [Suspect]
     Active Substance: SULFUR
     Dosage: 0.25 TEASPON(S) TWICE A DAY APPLED TO SURFACE, USUALLY THE SKIN
     Route: 061

REACTIONS (1)
  - Alopecia [None]

NARRATIVE: CASE EVENT DATE: 20151231
